FAERS Safety Report 8862805 (Version 5)
Quarter: 2013Q1

REPORT INFORMATION
  Report Type: Report from Study
  Country: US (occurrence: US)
  Receive Date: 20121026
  Receipt Date: 20130129
  Transmission Date: 20140127
  Serious: Yes (Hospitalization)
  Sender: FDA-Public Use
  Company Number: US-JNJFOC-20121014138

PATIENT
  Age: 15 Year
  Sex: Female
  Weight: 56.3 kg

DRUGS (5)
  1. INFLIXIMAB, RECOMBINANT [Suspect]
     Indication: CROHN^S DISEASE
     Route: 042
     Dates: start: 20090724, end: 20101217
  2. HUMIRA [Concomitant]
     Indication: CROHN^S DISEASE
  3. 5-ASA [Concomitant]
  4. PREDNISONE [Concomitant]
  5. METRONIDAZOLE [Concomitant]

REACTIONS (2)
  - Crohn^s disease [Recovered/Resolved]
  - Clostridium difficile infection [Recovered/Resolved]
